FAERS Safety Report 7656648-4 (Version None)
Quarter: 2011Q3

REPORT INFORMATION
  Report Type: 
  Country: None (occurrence: None)
  Receive Date: 20110804
  Receipt Date: 20110801
  Transmission Date: 20111222
  Serious: No
  Sender: FDA-Public Use
  Company Number: US-PFIZER INC-2011176173

PATIENT
  Sex: Female

DRUGS (2)
  1. ADVIL LIQUI-GELS [Suspect]
     Indication: HEADACHE
     Dosage: 400 MG, UNK
     Dates: start: 20010101
  2. ADVIL LIQUI-GELS [Suspect]
     Dosage: UNK

REACTIONS (4)
  - DYSPNOEA [None]
  - SWELLING [None]
  - RASH MACULAR [None]
  - PRURITUS [None]
